FAERS Safety Report 24798781 (Version 1)
Quarter: 2025Q1

REPORT INFORMATION
  Report Type: Spontaneous
  Country: US (occurrence: US)
  Receive Date: 20250102
  Receipt Date: 20250102
  Transmission Date: 20250409
  Serious: Yes (Other)
  Sender: GLAXOSMITHKLINE
  Company Number: US-GlaxoSmithKline-A0315303A

PATIENT
  Sex: Male
  Weight: 113.38 kg

DRUGS (4)
  1. PAXIL [Suspect]
     Active Substance: PAROXETINE HYDROCHLORIDE
     Indication: Product used for unknown indication
     Dosage: 40 MG, 1D
     Route: 048
     Dates: start: 1996
  2. NORTRIPTYLINE [Concomitant]
     Active Substance: NORTRIPTYLINE
     Indication: Product used for unknown indication
     Dates: start: 1996, end: 1998
  3. DEMEROL [Concomitant]
     Active Substance: MEPERIDINE HYDROCHLORIDE
     Indication: Product used for unknown indication
  4. MORPHINE [Concomitant]
     Active Substance: MORPHINE
     Indication: Product used for unknown indication

REACTIONS (22)
  - Tunnel vision [Unknown]
  - Brain injury [Unknown]
  - Serotonin syndrome [Unknown]
  - Aggression [Not Recovered/Not Resolved]
  - Insomnia [Not Recovered/Not Resolved]
  - Blood pressure increased [Unknown]
  - Constipation [Not Recovered/Not Resolved]
  - Pain in extremity [Not Recovered/Not Resolved]
  - Dysuria [Not Recovered/Not Resolved]
  - Gait disturbance [Not Recovered/Not Resolved]
  - Penis disorder [Not Recovered/Not Resolved]
  - Loss of proprioception [Not Recovered/Not Resolved]
  - Dyskinesia [Unknown]
  - Nerve injury [Not Recovered/Not Resolved]
  - Amnesia [Unknown]
  - Withdrawal syndrome [Unknown]
  - Blood pressure increased [Unknown]
  - Electric shock sensation [Not Recovered/Not Resolved]
  - Photopsia [Unknown]
  - Pain [Unknown]
  - Diarrhoea [Unknown]
  - Extra dose administered [Unknown]
